FAERS Safety Report 8350380-X (Version None)
Quarter: 2012Q2

REPORT INFORMATION
  Report Type: 
  Country: None (occurrence: None)
  Receive Date: 20120510
  Receipt Date: 20120427
  Transmission Date: 20120825
  Serious: Yes (Congenital Anomaly)
  Sender: FDA-Public Use
  Company Number: PHHY2012DE038432

PATIENT
  Sex: Male
  Weight: 1.1 kg

DRUGS (3)
  1. FOLIC ACID [Concomitant]
     Indication: PROPHYLAXIS OF NEURAL TUBE DEFECT
     Dosage: UNK UKN, UNK
     Route: 064
  2. DIOVAN [Suspect]
     Indication: HYPERTENSION
     Dosage: MATERNAL DOSE (40 MG PER DAY)
     Route: 064
     Dates: start: 20090910
  3. PROPYCIL [Concomitant]
     Indication: HYPERTHYROIDISM
     Dosage: MATERNAL DOSE 150 MG PER DAY
     Route: 064

REACTIONS (9)
  - RENAL APLASIA [None]
  - RENAL FAILURE [None]
  - KIDNEY ENLARGEMENT [None]
  - FOETAL EXPOSURE DURING PREGNANCY [None]
  - VENTRICULAR SEPTAL DEFECT [None]
  - RENAL HYPERTROPHY [None]
  - KIDNEY FIBROSIS [None]
  - HYPERTROPHY [None]
  - CONGENITAL BLADDER ANOMALY [None]
